FAERS Safety Report 10964753 (Version 1)
Quarter: 2015Q1

REPORT INFORMATION
  Report Type: Spontaneous
  Country: US (occurrence: US)
  Receive Date: 20150330
  Receipt Date: 20150330
  Transmission Date: 20150721
  Serious: Yes (Hospitalization)
  Sender: FDA-Public Use
  Company Number: US-ROCHE-1556859

PATIENT
  Sex: Female

DRUGS (2)
  1. KLONOPIN [Suspect]
     Active Substance: CLONAZEPAM
     Indication: MUSCLE RELAXANT THERAPY
     Dosage: TOOK MEDICATION FOR 15 YEARS
     Route: 065
  2. KLONOPIN [Suspect]
     Active Substance: CLONAZEPAM
     Indication: BIPOLAR I DISORDER

REACTIONS (4)
  - Hypertension [Unknown]
  - Drug dose omission [Unknown]
  - Palpitations [Unknown]
  - Feeling abnormal [Not Recovered/Not Resolved]
